FAERS Safety Report 10655216 (Version 2)
Quarter: 2015Q1

REPORT INFORMATION
  Report Type: Spontaneous
  Country: US (occurrence: US)
  Receive Date: 20141216
  Receipt Date: 20150311
  Transmission Date: 20150720
  Serious: No
  Sender: FDA-Public Use
  Company Number: US-GILEAD-2014-0127213

PATIENT
  Age: 53 Year
  Sex: Female
  Weight: 65.31 kg

DRUGS (6)
  1. REMODULIN [Suspect]
     Active Substance: TREPROSTINIL
     Dosage: 0.037 UG/KG
     Route: 058
     Dates: start: 20141125
  2. COUMADIN [Concomitant]
     Active Substance: WARFARIN SODIUM
  3. LETAIRIS [Suspect]
     Active Substance: AMBRISENTAN
     Indication: PRODUCT USED FOR UNKNOWN INDICATION
     Dosage: 10 MG, QD
     Route: 065
     Dates: start: 20140113
  4. REMODULIN [Suspect]
     Active Substance: TREPROSTINIL
     Dosage: 0.0235 UG/KG
     Route: 058
     Dates: start: 20140919
  5. REMODULIN [Suspect]
     Active Substance: TREPROSTINIL
     Dosage: 0.028 UG/KG
     Route: 058
     Dates: start: 20140919
  6. REMODULIN [Suspect]
     Active Substance: TREPROSTINIL
     Indication: PULMONARY HYPERTENSION
     Dosage: 0.00875 UG/KG
     Route: 058
     Dates: start: 20140919

REACTIONS (1)
  - Laceration [Unknown]
